FAERS Safety Report 21309227 (Version 2)
Quarter: 2022Q4

REPORT INFORMATION
  Report Type: Spontaneous
  Country: GB (occurrence: GB)
  Receive Date: 20220908
  Receipt Date: 20221020
  Transmission Date: 20230113
  Serious: Yes (Hospitalization, Other)
  Sender: FDA-Public Use
  Company Number: GB-Accord-275677

PATIENT
  Age: 65 Year
  Sex: Male
  Weight: 93 kg

DRUGS (9)
  1. GEMCITABINE HYDROCHLORIDE [Suspect]
     Active Substance: GEMCITABINE HYDROCHLORIDE
     Dosage: 1Q2W (REGIMEN 1)
     Route: 042
     Dates: start: 20220629, end: 20220803
  2. OXALIPLATIN [Suspect]
     Active Substance: OXALIPLATIN
     Indication: Follicular lymphoma stage IV
     Dosage: 1Q2W (REGIMEN 1)
     Route: 042
     Dates: start: 20220629, end: 20220803
  3. EPCORITAMAB [Suspect]
     Active Substance: EPCORITAMAB
     Indication: Follicular lymphoma stage IV
     Dosage: FULL DOSE, WEEKLY (DUOBODY-CD3XCD20, REGIMEN 3 )
     Route: 058
     Dates: start: 20220720, end: 20220810
  4. EPCORITAMAB [Suspect]
     Active Substance: EPCORITAMAB
     Dosage: PRIMING DOSE, SINGLE
     Route: 058
     Dates: start: 20220629, end: 20220629
  5. EPCORITAMAB [Suspect]
     Active Substance: EPCORITAMAB
     Dosage: INTERMEDIATE DOSE, SINGLE
     Route: 058
     Dates: start: 20220706, end: 20220706
  6. ACYCLOVIR [Concomitant]
     Active Substance: ACYCLOVIR
     Dosage: UNK
     Dates: start: 20220629
  7. COTRIMOXAZOLE [Concomitant]
     Active Substance: SULFAMETHOXAZOLE\TRIMETHOPRIM
     Dosage: UNK
     Dates: start: 20220629
  8. FILGRASTIM [Concomitant]
     Active Substance: FILGRASTIM
     Dosage: UNK
     Dates: start: 20220707, end: 20220906
  9. LANSOPRAZOLE [Concomitant]
     Active Substance: LANSOPRAZOLE
     Dosage: UNK
     Dates: start: 20220629

REACTIONS (5)
  - Haematemesis [Unknown]
  - Haematochezia [Unknown]
  - Diarrhoea [Unknown]
  - Upper gastrointestinal haemorrhage [Recovered/Resolved]
  - Vomiting [Unknown]

NARRATIVE: CASE EVENT DATE: 20220813
